FAERS Safety Report 23706687 (Version 22)
Quarter: 2025Q1

REPORT INFORMATION
  Report Type: Spontaneous
  Country: CA (occurrence: CA)
  Receive Date: 20240404
  Receipt Date: 20250311
  Transmission Date: 20250408
  Serious: Yes (Death, Hospitalization, Other)
  Sender: PFIZER
  Company Number: CA-PFIZER INC-202400076861

PATIENT
  Age: 81 Year
  Sex: Male

DRUGS (28)
  1. ABRILADA [Suspect]
     Active Substance: ADALIMUMAB-AFZB
     Indication: Psoriatic arthropathy
     Route: 058
     Dates: start: 20231128
  2. ABRILADA [Suspect]
     Active Substance: ADALIMUMAB-AFZB
     Route: 058
     Dates: start: 20240318, end: 20240401
  3. ABRILADA [Suspect]
     Active Substance: ADALIMUMAB-AFZB
     Route: 058
     Dates: start: 20240416
  4. ABRILADA [Suspect]
     Active Substance: ADALIMUMAB-AFZB
     Route: 058
     Dates: start: 20240509
  5. ABRILADA [Suspect]
     Active Substance: ADALIMUMAB-AFZB
     Route: 058
     Dates: start: 20240523
  6. ABRILADA [Suspect]
     Active Substance: ADALIMUMAB-AFZB
     Route: 058
     Dates: start: 20240605
  7. ABRILADA [Suspect]
     Active Substance: ADALIMUMAB-AFZB
     Route: 058
     Dates: start: 20240716
  8. ABRILADA [Suspect]
     Active Substance: ADALIMUMAB-AFZB
     Route: 058
     Dates: start: 20240909
  9. ABRILADA [Suspect]
     Active Substance: ADALIMUMAB-AFZB
     Route: 058
     Dates: start: 20240923
  10. ABRILADA [Suspect]
     Active Substance: ADALIMUMAB-AFZB
     Route: 058
     Dates: start: 20241021
  11. ALENDRONATE [Concomitant]
     Active Substance: ALENDRONATE SODIUM
  12. CALCIUM [Concomitant]
     Active Substance: CALCIUM
  13. CIPRO [Concomitant]
     Active Substance: CIPROFLOXACIN HYDROCHLORIDE
  14. DABIGATRAN [Concomitant]
     Active Substance: DABIGATRAN
  15. FERROUS GLUCONATE [Concomitant]
     Active Substance: FERROUS GLUCONATE
  16. FINASTERIDE [Concomitant]
     Active Substance: FINASTERIDE
  17. FOLIC ACID [Concomitant]
     Active Substance: FOLIC ACID
  18. IRBESARTAN [Concomitant]
     Active Substance: IRBESARTAN
  19. LASIX [Concomitant]
     Active Substance: FUROSEMIDE
  20. METHOTREXATE [Concomitant]
     Active Substance: METHOTREXATE
     Indication: Psoriatic arthropathy
     Dosage: 10 MG, WEEKLY
     Route: 065
  21. METOPROLOL [Concomitant]
     Active Substance: METOPROLOL
  22. PREDNISONE [Concomitant]
     Active Substance: PREDNISONE
  23. PREDNISONE [Concomitant]
     Active Substance: PREDNISONE
  24. PANTOPRAZOLE [Concomitant]
     Active Substance: PANTOPRAZOLE
  25. SULFASALAZINE [Concomitant]
     Active Substance: SULFASALAZINE
     Indication: Psoriatic arthropathy
     Route: 065
  26. TAMSULOSIN [Concomitant]
     Active Substance: TAMSULOSIN
  27. TYLENOL [Concomitant]
     Active Substance: ACETAMINOPHEN
  28. CHOLECALCIFEROL [Concomitant]
     Active Substance: CHOLECALCIFEROL

REACTIONS (16)
  - Death [Fatal]
  - Intervertebral disc compression [Not Recovered/Not Resolved]
  - Fluid retention [Recovering/Resolving]
  - Sepsis [Recovered/Resolved]
  - Septic shock [Recovered/Resolved]
  - Erythema [Not Recovered/Not Resolved]
  - Peripheral swelling [Not Recovered/Not Resolved]
  - Condition aggravated [Not Recovered/Not Resolved]
  - Immobile [Recovering/Resolving]
  - Localised infection [Recovered/Resolved]
  - Cellulitis [Recovered/Resolved]
  - Gout [Recovering/Resolving]
  - Insomnia [Unknown]
  - Skin infection [Unknown]
  - Onychomycosis [Recovering/Resolving]
  - Panic attack [Unknown]

NARRATIVE: CASE EVENT DATE: 20240101
